FAERS Safety Report 13102592 (Version 2)
Quarter: 2017Q1

REPORT INFORMATION
  Report Type: Spontaneous
  Country: TR (occurrence: TR)
  Receive Date: 20170110
  Receipt Date: 20170111
  Transmission Date: 20170428
  Serious: Yes (Hospitalization)
  Sender: FDA-Public Use
  Company Number: ALCN2016TR009894

PATIENT
  Age: 3 Month
  Sex: Male

DRUGS (1)
  1. BRIMONIDINE [Suspect]
     Active Substance: BRIMONIDINE TARTRATE
     Indication: PRODUCT USED FOR UNKNOWN INDICATION
     Dosage: 1 OT (APPROXIMATELY 1 CC), UNK
     Route: 045

REACTIONS (12)
  - Miosis [Recovered/Resolved]
  - Pupillary reflex impaired [Recovered/Resolved]
  - Oxygen saturation decreased [Recovered/Resolved]
  - Accidental exposure to product [Unknown]
  - Heart rate increased [Recovered/Resolved]
  - General physical health deterioration [Recovered/Resolved]
  - Hypopnoea [Recovered/Resolved]
  - Toxicity to various agents [Recovered/Resolved]
  - Hypothermia [Recovered/Resolved]
  - Hypotonia [Recovered/Resolved]
  - Cyanosis [Recovered/Resolved]
  - Respiratory failure [Recovered/Resolved]
